FAERS Safety Report 25579716 (Version 3)
Quarter: 2025Q3

REPORT INFORMATION
  Report Type: Spontaneous
  Country: US (occurrence: US)
  Receive Date: 20250718
  Receipt Date: 20250718
  Transmission Date: 20251021
  Serious: No
  Sender: NOVO NORDISK
  Company Number: US-NOVOPROD-1288534

PATIENT
  Age: 29 Year
  Sex: Male

DRUGS (3)
  1. WEGOVY [Suspect]
     Active Substance: SEMAGLUTIDE
     Indication: Obesity
     Dosage: 0.5 MG, QW
     Route: 058
  2. WEGOVY [Suspect]
     Active Substance: SEMAGLUTIDE
     Indication: Obesity
     Route: 058
     Dates: end: 20240715
  3. WEGOVY [Suspect]
     Active Substance: SEMAGLUTIDE
     Indication: Obesity
     Dosage: 1.7 MG, QW
     Dates: start: 20240515, end: 202407

REACTIONS (9)
  - Gastrointestinal inflammation [Not Recovered/Not Resolved]
  - Illness [Not Recovered/Not Resolved]
  - Viral infection [Not Recovered/Not Resolved]
  - Urticaria [Recovered/Resolved]
  - Rash [Recovered/Resolved]
  - Vomiting [Not Recovered/Not Resolved]
  - Nausea [Not Recovered/Not Resolved]
  - Weight loss poor [Not Recovered/Not Resolved]
  - Diarrhoea [Not Recovered/Not Resolved]

NARRATIVE: CASE EVENT DATE: 20240617
